FAERS Safety Report 12081151 (Version 1)
Quarter: 2016Q1

REPORT INFORMATION
  Report Type: Spontaneous
  Country: US (occurrence: US)
  Receive Date: 20160216
  Receipt Date: 20160216
  Transmission Date: 20160526
  Serious: No
  Sender: FDA-Public Use
  Company Number: US-NEPHRON PHARMACEUTICALS CORPORATION-1047903

PATIENT
  Age: 68 Year
  Sex: Female
  Weight: 91.36 kg

DRUGS (12)
  1. IPRATROPIUM BROMIDE AND ALBUTEROL SULFATE [Suspect]
     Active Substance: ALBUTEROL SULFATE\IPRATROPIUM BROMIDE
     Indication: EMPHYSEMA
     Route: 055
     Dates: start: 20150204
  2. FISH OIL [Concomitant]
     Active Substance: FISH OIL
  3. METFORMIN [Concomitant]
     Active Substance: METFORMIN HYDROCHLORIDE
  4. ASPIRIN. [Concomitant]
     Active Substance: ASPIRIN
  5. HYDROCHLOROTHIAZIDE. [Concomitant]
     Active Substance: HYDROCHLOROTHIAZIDE
  6. MONTELUKAST [Concomitant]
     Active Substance: MONTELUKAST SODIUM
  7. OXYGEN. [Concomitant]
     Active Substance: OXYGEN
  8. FUROSEMIDE. [Concomitant]
     Active Substance: FUROSEMIDE
  9. METOPROLOL. [Concomitant]
     Active Substance: METOPROLOL
  10. LISINOPRIL. [Concomitant]
     Active Substance: LISINOPRIL
  11. ALBUTEROL SULFATE. [Concomitant]
     Active Substance: ALBUTEROL SULFATE
  12. SIMVASTATIN. [Concomitant]
     Active Substance: SIMVASTATIN

REACTIONS (1)
  - Bladder pain [Unknown]

NARRATIVE: CASE EVENT DATE: 20150218
